FAERS Safety Report 4508626-1 (Version None)
Quarter: 2004Q4

REPORT INFORMATION
  Report Type: 
  Country: None (occurrence: None)
  Receive Date: 20041123
  Receipt Date: 20040505
  Transmission Date: 20050328
  Serious: No
  Sender: FDA-Public Use
  Company Number: US-GLAXOSMITHKLINE-A0509653A

PATIENT
  Age: 53 Year
  Sex: Male

DRUGS (7)
  1. WELLBUTRIN SR [Suspect]
     Indication: DEPRESSION
     Dosage: 150MG TWICE PER DAY
     Route: 048
     Dates: start: 20030401
  2. BUPROPION HYDROCHLORIDE [Suspect]
  3. NIACIN [Concomitant]
  4. CRESTOR [Concomitant]
  5. LANOXIN [Concomitant]
  6. COUMADIN [Concomitant]
  7. ATENOLOL [Concomitant]

REACTIONS (1)
  - PRURITUS [None]
